FAERS Safety Report 24166863 (Version 2)
Quarter: 2024Q3

REPORT INFORMATION
  Report Type: Spontaneous
  Country: EC (occurrence: EC)
  Receive Date: 20240802
  Receipt Date: 20240821
  Transmission Date: 20241017
  Serious: Yes (Life-Threatening, Hospitalization)
  Sender: ACCORD
  Company Number: EC-MLMSERVICE-20240716-PI134123-00218-1

PATIENT
  Age: 45 Year
  Sex: Male
  Weight: 67 kg

DRUGS (17)
  1. METHOTREXATE [Suspect]
     Active Substance: METHOTREXATE
     Indication: High grade B-cell lymphoma Burkitt-like lymphoma stage IV
     Dosage: 9550 MG IV IN 23 H, DOSE OF 6.56 G/M2, DAY 0
  2. ACYCLOVIR [Concomitant]
     Active Substance: ACYCLOVIR
     Indication: Prophylaxis
  3. SODIUM BICARBONATE [Concomitant]
     Active Substance: SODIUM BICARBONATE
     Indication: Urine alkalinisation therapy
  4. COTRIMOXAZOLE [Concomitant]
     Active Substance: SULFAMETHOXAZOLE\TRIMETHOPRIM
     Indication: Prophylaxis
  5. CYCLOPHOSPHAMIDE [Concomitant]
     Active Substance: CYCLOPHOSPHAMIDE
     Indication: High grade B-cell lymphoma Burkitt-like lymphoma stage IV
  6. CYTARABINE [Concomitant]
     Active Substance: CYTARABINE
     Indication: High grade B-cell lymphoma Burkitt-like lymphoma stage IV
  7. DOXORUBICIN [Concomitant]
     Active Substance: DOXORUBICIN
     Indication: High grade B-cell lymphoma Burkitt-like lymphoma stage IV
  8. ETOPOSIDE [Concomitant]
     Active Substance: ETOPOSIDE
     Indication: High grade B-cell lymphoma Burkitt-like lymphoma stage IV
  9. IFOSFAMIDE [Concomitant]
     Active Substance: IFOSFAMIDE
     Indication: High grade B-cell lymphoma Burkitt-like lymphoma stage IV
  10. LEUCOVORIN [Concomitant]
     Active Substance: LEUCOVORIN\LEUCOVORIN CALCIUM
     Dosage: 350 MG IV STAT, DAY 2
  11. RITUXIMAB [Concomitant]
     Active Substance: RITUXIMAB
     Indication: High grade B-cell lymphoma Burkitt-like lymphoma stage IV
  12. VINCRISTINE [Concomitant]
     Active Substance: VINCRISTINE
     Indication: High grade B-cell lymphoma Burkitt-like lymphoma stage IV
  13. DEXTROSE [Concomitant]
     Active Substance: DEXTROSE\DEXTROSE MONOHYDRATE
     Dosage: 5% DEXTROSE IN WATER 250 ML IV IN 1 HOUR
  14. LEUCOVORIN [Concomitant]
     Active Substance: LEUCOVORIN\LEUCOVORIN CALCIUM
     Dosage: 20 MG IV EVERY 6 HOURS, DAY 2, COMPLETE 10 DOSES
  15. METHOTREXATE [Suspect]
     Active Substance: METHOTREXATE
     Indication: High grade B-cell lymphoma Burkitt-like lymphoma stage IV
     Dosage: 9550 MG IV IN 23 H, DOSE OF 6.56 G/M2, DAY 0
  16. RITUXIMAB [Concomitant]
     Active Substance: RITUXIMAB
     Indication: High grade B-cell lymphoma Burkitt-like lymphoma stage IV
  17. METHOTREXATE [Suspect]
     Active Substance: METHOTREXATE
     Indication: High grade B-cell lymphoma Burkitt-like lymphoma stage IV
     Dosage: 2.076 MG IV STAT, DAY 0

REACTIONS (11)
  - Febrile neutropenia [Not Recovered/Not Resolved]
  - Septic shock [Recovered/Resolved]
  - Mucosal inflammation [Recovered/Resolved]
  - Pancytopenia [Not Recovered/Not Resolved]
  - Multiple organ dysfunction syndrome [Recovered/Resolved]
  - Cardiac failure [Recovered/Resolved]
  - Acute respiratory failure [Recovered/Resolved]
  - Acute kidney injury [Recovering/Resolving]
  - Haemodynamic instability [Recovered/Resolved]
  - Liver injury [Not Recovered/Not Resolved]
  - Chemotherapeutic drug level increased [Recovered/Resolved]
